FAERS Safety Report 6653911-0 (Version None)
Quarter: 2010Q1

REPORT INFORMATION
  Report Type: 
  Country: None (occurrence: None)
  Receive Date: 20100326
  Receipt Date: 20100317
  Transmission Date: 20100710
  Serious: Yes (Hospitalization)
  Sender: FDA-Public Use
  Company Number: AU-ALLERGAN-1003872US

PATIENT
  Age: 11 Month
  Sex: Female
  Weight: 8 kg

DRUGS (1)
  1. PV CARPINE UNSPECIFIED [Suspect]
     Indication: ACCIDENTAL EXPOSURE
     Dosage: 4 ML, SINGLE
     Route: 048
     Dates: start: 20041213, end: 20041213

REACTIONS (1)
  - ACCIDENTAL EXPOSURE [None]
